FAERS Safety Report 25647227 (Version 2)
Quarter: 2025Q3

REPORT INFORMATION
  Report Type: Report from Study
  Country: US (occurrence: US)
  Receive Date: 20250806
  Receipt Date: 20250825
  Transmission Date: 20251021
  Serious: Yes (Hospitalization)
  Sender: SANOFI AVENTIS
  Company Number: US-SA-2025SA223557

PATIENT
  Age: 71 Year
  Sex: Female
  Weight: 113.2 kg

DRUGS (38)
  1. ISATUXIMAB [Suspect]
     Active Substance: ISATUXIMAB
     Indication: Plasma cell myeloma refractory
     Dosage: 1100 MG, QW
     Dates: start: 20220427, end: 20220529
  2. ISATUXIMAB [Suspect]
     Active Substance: ISATUXIMAB
     Dosage: 1100 MG, BIW
     Dates: start: 20220530, end: 20220612
  3. ISATUXIMAB [Suspect]
     Active Substance: ISATUXIMAB
     Dosage: 1100 MG, BIW
     Dates: start: 20220627, end: 20220711
  4. ISATUXIMAB [Suspect]
     Active Substance: ISATUXIMAB
     Dosage: 1100 MG, BIW
     Dates: start: 20220724, end: 20220806
  5. ISATUXIMAB [Suspect]
     Active Substance: ISATUXIMAB
     Dosage: 1100 MG, BIW
     Dates: start: 20220824, end: 20220910
  6. ISATUXIMAB [Suspect]
     Active Substance: ISATUXIMAB
     Dosage: 1100 MG, BIW
     Dates: start: 20221003, end: 20221007
  7. ISATUXIMAB [Suspect]
     Active Substance: ISATUXIMAB
     Dosage: 1100 MG, BIW
     Dates: start: 20221017, end: 20221029
  8. ISATUXIMAB [Suspect]
     Active Substance: ISATUXIMAB
     Dosage: 1100 MG, BIW
     Dates: start: 20221215, end: 20221225
  9. POMALIDOMIDE [Suspect]
     Active Substance: POMALIDOMIDE
     Indication: Plasma cell myeloma refractory
     Dosage: 2 MG, QD
     Dates: start: 20220427, end: 20220529
  10. POMALIDOMIDE [Suspect]
     Active Substance: POMALIDOMIDE
     Dosage: 1 MG, QD
     Dates: start: 20220530, end: 20220612
  11. POMALIDOMIDE [Suspect]
     Active Substance: POMALIDOMIDE
     Dosage: 1 MG, QD
     Dates: start: 20220627, end: 20220711
  12. POMALIDOMIDE [Suspect]
     Active Substance: POMALIDOMIDE
     Dosage: 1 MG, QD
     Dates: start: 20220724, end: 20220806
  13. POMALIDOMIDE [Suspect]
     Active Substance: POMALIDOMIDE
     Dosage: 1 MG, QD
     Dates: start: 20220824, end: 20220910
  14. POMALIDOMIDE [Suspect]
     Active Substance: POMALIDOMIDE
     Dosage: 1 MG, QD
     Dates: start: 20221017, end: 20221029
  15. POMALIDOMIDE [Suspect]
     Active Substance: POMALIDOMIDE
     Dosage: 1 MG, QD
     Dates: start: 20221215, end: 20221225
  16. DEXAMETHASONE [Suspect]
     Active Substance: DEXAMETHASONE
     Indication: Plasma cell myeloma refractory
     Dosage: 40 MG, QW
     Dates: start: 20220427, end: 20220529
  17. DEXAMETHASONE [Suspect]
     Active Substance: DEXAMETHASONE
     Dosage: 40 MG, BIW
     Dates: start: 20220530, end: 20220612
  18. DEXAMETHASONE [Suspect]
     Active Substance: DEXAMETHASONE
     Dosage: 40 MG, BIW
     Dates: start: 20220627, end: 20220711
  19. DEXAMETHASONE [Suspect]
     Active Substance: DEXAMETHASONE
     Dosage: 40 MG, BIW
     Dates: start: 20220724, end: 20220806
  20. DEXAMETHASONE [Suspect]
     Active Substance: DEXAMETHASONE
     Dosage: 40 MG, BIW
     Dates: start: 20220824, end: 20220910
  21. DEXAMETHASONE [Suspect]
     Active Substance: DEXAMETHASONE
     Dosage: 40 MG, BIW
     Dates: start: 20221003, end: 20221007
  22. DEXAMETHASONE [Suspect]
     Active Substance: DEXAMETHASONE
     Dosage: 40 MG, BIW
     Dates: start: 20221017, end: 20221029
  23. DEXAMETHASONE [Suspect]
     Active Substance: DEXAMETHASONE
     Dosage: 40 MG, BIW
     Dates: start: 20221215, end: 20221225
  24. ACETAMINOPHEN [Concomitant]
     Active Substance: ACETAMINOPHEN
     Indication: Premedication
     Dates: start: 20220427
  25. FAMOTIDINE [Concomitant]
     Active Substance: FAMOTIDINE
     Indication: Premedication
     Dates: start: 20220427
  26. DIPHENHYDRAMINE [Concomitant]
     Active Substance: DIPHENHYDRAMINE
     Indication: Premedication
     Dates: start: 20220427
  27. INSULIN NOS [Concomitant]
     Active Substance: INSULIN NOS
     Dates: start: 20191118
  28. ELIQUIS [Concomitant]
     Active Substance: APIXABAN
     Dates: start: 20190929
  29. CALCIUM [Concomitant]
     Active Substance: CALCIUM
     Dates: start: 20150512
  30. ADVAIR HFA [Concomitant]
     Active Substance: FLUTICASONE PROPIONATE\SALMETEROL XINAFOATE
     Dates: start: 20210902
  31. METFORMIN [Concomitant]
     Active Substance: METFORMIN HYDROCHLORIDE
     Dates: start: 20131001
  32. TOPROL XL [Concomitant]
     Active Substance: METOPROLOL SUCCINATE
     Dates: start: 20131001
  33. LYRICA [Concomitant]
     Active Substance: PREGABALIN
     Dates: start: 20160221
  34. PRILOSEC [Concomitant]
     Active Substance: OMEPRAZOLE MAGNESIUM
     Dates: start: 20160729
  35. CITALOPRAM [Concomitant]
     Active Substance: CITALOPRAM
     Dates: start: 20131001
  36. AMLODIPINE [Concomitant]
     Active Substance: AMLODIPINE BESYLATE
     Dates: start: 20220404
  37. CEFTRIAXONE [Concomitant]
     Active Substance: CEFTRIAXONE
     Dates: start: 20221030, end: 20221114
  38. VANCOMYCIN [Concomitant]
     Active Substance: VANCOMYCIN
     Dates: start: 20021030, end: 20221117

REACTIONS (2)
  - Abdominal pain [Recovering/Resolving]
  - Non-cardiac chest pain [Recovered/Resolved]

NARRATIVE: CASE EVENT DATE: 20221115
